FAERS Safety Report 22620360 (Version 11)
Quarter: 2025Q2

REPORT INFORMATION
  Report Type: Spontaneous
  Country: US (occurrence: US)
  Receive Date: 20230620
  Receipt Date: 20250630
  Transmission Date: 20250717
  Serious: Yes (Other)
  Sender: PFIZER
  Company Number: US-PFIZER INC-PV202300105325

PATIENT
  Age: 66 Year
  Sex: Male
  Weight: 113.56 kg

DRUGS (2)
  1. BOSULIF [Suspect]
     Active Substance: BOSUTINIB MONOHYDRATE
     Indication: Chronic myeloid leukaemia (in remission)
     Dosage: 500 MG TABLETS ONCE DAILY
     Route: 048
     Dates: start: 20230911
  2. BOSULIF [Suspect]
     Active Substance: BOSUTINIB MONOHYDRATE
     Dosage: 500 MG TABLET DAILY

REACTIONS (6)
  - Spinal operation [Unknown]
  - Neck surgery [Unknown]
  - Nausea [Unknown]
  - Abdominal discomfort [Unknown]
  - Renal disorder [Unknown]
  - Dysphonia [Unknown]

NARRATIVE: CASE EVENT DATE: 20250101
